FAERS Safety Report 6131791-X (Version None)
Quarter: 2009Q1

REPORT INFORMATION
  Report Type: 
  Country: None (occurrence: None)
  Receive Date: 20090325
  Receipt Date: 20090313
  Transmission Date: 20090719
  Serious: Yes (Other)
  Sender: FDA-Public Use
  Company Number: US-JNJCH-2009007277

PATIENT
  Age: 65 Year
  Sex: Female
  Weight: 86.2 kg

DRUGS (1)
  1. LUBRIDERM DAILY MOISTURE FRAGRANCE FREE [Suspect]
     Indication: DRY SKIN
     Dosage: TEXT:LESS THAN AN EIGHTH TWICE A DAY
     Route: 061
     Dates: start: 20081217, end: 20081223

REACTIONS (4)
  - APPLICATION SITE DRYNESS [None]
  - APPLICATION SITE RASH [None]
  - APPLICATION SITE SWELLING [None]
  - CONDITION AGGRAVATED [None]
